FAERS Safety Report 25117489 (Version 2)
Quarter: 2025Q2

REPORT INFORMATION
  Report Type: Spontaneous
  Country: US (occurrence: US)
  Receive Date: 20250325
  Receipt Date: 20250409
  Transmission Date: 20250716
  Serious: Yes (Other)
  Sender: JOHNSON AND JOHNSON
  Company Number: US-JNJFOC-20250359432

PATIENT
  Age: 67 Year
  Sex: Female

DRUGS (5)
  1. SPRAVATO [Suspect]
     Active Substance: ESKETAMINE
     Indication: Major depression
     Route: 045
     Dates: start: 20241108
  2. SPRAVATO [Suspect]
     Active Substance: ESKETAMINE
     Dosage: TREATMENT DATES: 15-NOV-2024, 18-NOV-2024, 22-NOV-2024, 25-NOV-2024, 04-DEC-2024
     Route: 045
     Dates: start: 20241113, end: 20241209
  3. CLONAZEPAM [Concomitant]
     Active Substance: CLONAZEPAM
     Indication: Anxiety
     Dates: start: 202401
  4. REXULTI [Concomitant]
     Active Substance: BREXPIPRAZOLE
     Indication: Major depression
     Dates: start: 202406
  5. PROZAC [Concomitant]
     Active Substance: FLUOXETINE HYDROCHLORIDE
     Indication: Major depression
     Dates: start: 202401

REACTIONS (2)
  - Internal haemorrhage [Unknown]
  - Urinary incontinence [Unknown]
